FAERS Safety Report 4585738-8 (Version None)
Quarter: 2005Q1

REPORT INFORMATION
  Report Type: 
  Country: None (occurrence: None)
  Receive Date: 20050217
  Receipt Date: 20050207
  Transmission Date: 20050727
  Serious: Yes (Other)
  Sender: FDA-Public Use
  Company Number: PHBS2005BE02096

PATIENT
  Age: 87 Year
  Sex: Female

DRUGS (7)
  1. NOLVADEX [Concomitant]
     Route: 065
     Dates: start: 20020501
  2. ARIMIDEX [Concomitant]
     Route: 065
     Dates: start: 20040901
  3. ACETAMINOPHEN [Concomitant]
     Route: 065
     Dates: start: 20040901
  4. DAFLON [Concomitant]
     Route: 065
  5. SINTROM [Concomitant]
     Route: 065
  6. TRAZOLAN [Concomitant]
     Route: 065
  7. ZOMETA [Suspect]
     Indication: METASTASES TO BONE
     Dates: start: 20020913, end: 20040618

REACTIONS (5)
  - CREATININE RENAL CLEARANCE DECREASED [None]
  - DEEP VEIN THROMBOSIS [None]
  - JAW OPERATION [None]
  - OSTEONECROSIS [None]
  - RENAL FAILURE [None]
